APPROVED DRUG PRODUCT: SODIUM NITRITE
Active Ingredient: SODIUM NITRITE
Strength: 300MG/10ML (30MG/ML)
Dosage Form/Route: SOLUTION;INTRAVENOUS
Application: N203922 | Product #001
Applicant: HOPE PHARMACEUTICALS
Approved: Feb 14, 2012 | RLD: Yes | RS: Yes | Type: RX

PATENTS:
Patent 9687506 | Expires: Feb 10, 2030
Patent 9687506 | Expires: Feb 10, 2030
Patent 8568793 | Expires: Dec 24, 2031